FAERS Safety Report 18053062 (Version 1)
Quarter: 2020Q3

REPORT INFORMATION
  Report Type: Other
  Country: CN (occurrence: CN)
  Receive Date: 20200722
  Receipt Date: 20200722
  Transmission Date: 20201103
  Serious: Yes (Death)
  Sender: FDA-Public Use
  Company Number: CN-ROCHE-2137925

PATIENT
  Age: 40 Year
  Sex: Female
  Weight: 45 kg

DRUGS (1)
  1. AVASTIN [Suspect]
     Active Substance: BEVACIZUMAB
     Indication: COLORECTAL CANCER
     Route: 041
     Dates: start: 20170531

REACTIONS (4)
  - Nasopharyngitis [Unknown]
  - Dyspepsia [Unknown]
  - Dyspnoea [Fatal]
  - Asthenia [Unknown]

NARRATIVE: CASE EVENT DATE: 20200713
